FAERS Safety Report 20190127 (Version 1)
Quarter: 2021Q4

REPORT INFORMATION
  Report Type: Report from Study
  Country: DE (occurrence: DE)
  Receive Date: 20211215
  Receipt Date: 20211215
  Transmission Date: 20220303
  Serious: Yes (Other)
  Sender: FDA-Public Use
  Company Number: DE-TAKEDA-DE202010231

PATIENT
  Age: 62 Year
  Sex: Male

DRUGS (3)
  1. VON WILLEBRAND FACTOR HUMAN [Suspect]
     Active Substance: VON WILLEBRAND FACTOR HUMAN
     Indication: Von Willebrand^s disease
     Dosage: 2600 INTERNATIONAL UNIT, 2/WEEK
     Route: 042
  2. VON WILLEBRAND FACTOR HUMAN [Suspect]
     Active Substance: VON WILLEBRAND FACTOR HUMAN
     Dosage: 1950 INTERNATIONAL UNIT, 2/WEEK
     Route: 042
     Dates: start: 20200309
  3. VON WILLEBRAND FACTOR HUMAN [Suspect]
     Active Substance: VON WILLEBRAND FACTOR HUMAN
     Dosage: 3250 INTERNATIONAL UNIT, 2/WEEK
     Route: 042
     Dates: start: 20201203

REACTIONS (5)
  - Infusion site haematoma [Not Recovered/Not Resolved]
  - Iron deficiency anaemia [Unknown]
  - Haemoglobin decreased [Recovering/Resolving]
  - Poor venous access [Not Recovered/Not Resolved]
  - Overdose [Recovered/Resolved with Sequelae]

NARRATIVE: CASE EVENT DATE: 20201201
